FAERS Safety Report 6425187-0 (Version None)
Quarter: 2009Q4

REPORT INFORMATION
  Report Type: 
  Country: None (occurrence: None)
  Receive Date: 20091103
  Receipt Date: 20091023
  Transmission Date: 20100525
  Serious: Yes (Hospitalization, Congenital Anomaly)
  Sender: FDA-Public Use
  Company Number: BR-ROCHE-621986

PATIENT
  Sex: Male
  Weight: 3.5 kg

DRUGS (2)
  1. ROACUTAN [Suspect]
     Indication: ACNE
     Route: 064
     Dates: start: 20080101, end: 20080101
  2. ROACUTAN [Suspect]
     Route: 064
     Dates: start: 20090101, end: 20090201

REACTIONS (3)
  - CARDIAC FAILURE [None]
  - DANDY-WALKER SYNDROME [None]
  - EAR MALFORMATION [None]
